FAERS Safety Report 24890286 (Version 1)
Quarter: 2025Q1

REPORT INFORMATION
  Report Type: Spontaneous
  Country: US (occurrence: US)
  Receive Date: 20250127
  Receipt Date: 20250127
  Transmission Date: 20250408
  Serious: No
  Sender: ABBVIE
  Company Number: US-ABBVIE-6102552

PATIENT
  Sex: Female

DRUGS (1)
  1. GENGRAF [Suspect]
     Active Substance: CYCLOSPORINE
     Indication: T-cell lymphoma
     Route: 048
     Dates: start: 202411

REACTIONS (3)
  - Off label use [Unknown]
  - Alopecia [Not Recovered/Not Resolved]
  - Trichorrhexis [Unknown]

NARRATIVE: CASE EVENT DATE: 20241201
